FAERS Safety Report 19571262 (Version 2)
Quarter: 2021Q3

REPORT INFORMATION
  Report Type: Spontaneous
  Country: FR (occurrence: FR)
  Receive Date: 20210715
  Receipt Date: 20210810
  Transmission Date: 20211014
  Serious: Yes (Other)
  Sender: FDA-Public Use
  Company Number: FR-REGENERON PHARMACEUTICALS, INC.-2021-68696

PATIENT

DRUGS (1)
  1. EYLEA [Suspect]
     Active Substance: AFLIBERCEPT
     Indication: PRODUCT USED FOR UNKNOWN INDICATION
     Dosage: UNKNOWN TOTAL NUMBER OF DOSES OF EYLEA

REACTIONS (2)
  - Visual impairment [Unknown]
  - Transcatheter aortic valve implantation [Unknown]

NARRATIVE: CASE EVENT DATE: 20210527
